FAERS Safety Report 7544286-3 (Version None)
Quarter: 2011Q2

REPORT INFORMATION
  Report Type: 
  Country: None (occurrence: None)
  Receive Date: 20110613
  Receipt Date: 20071105
  Transmission Date: 20111010
  Serious: Yes (Other)
  Sender: FDA-Public Use
  Company Number: PHHO2007JP18531

PATIENT
  Sex: Male
  Weight: 73 kg

DRUGS (6)
  1. LASIX [Concomitant]
     Dosage: UNK
  2. CALBLOCK [Concomitant]
     Dosage: UNK
  3. ALDACTONE [Concomitant]
     Dosage: UNK
  4. NORMONAL [Concomitant]
     Dosage: UNK
  5. DIOVAN [Suspect]
     Indication: HYPERTENSION
     Dosage: 80 MG, QD
     Route: 048
     Dates: start: 20030225, end: 20061114
  6. NORVASC [Concomitant]
     Dosage: UNK

REACTIONS (1)
  - SPINAL CORD NEOPLASM [None]
